FAERS Safety Report 23503823 (Version 2)
Quarter: 2024Q1

REPORT INFORMATION
  Report Type: Spontaneous
  Country: IT (occurrence: IT)
  Receive Date: 20240209
  Receipt Date: 20240302
  Transmission Date: 20240410
  Serious: Yes (Other)
  Sender: FDA-Public Use
  Company Number: IT-CELLTRION INC.-2024IT002895

PATIENT

DRUGS (6)
  1. RITUXIMAB [Suspect]
     Active Substance: RITUXIMAB
     Indication: Focal segmental glomerulosclerosis
     Dosage: 375 MG/M2, SINGLE DOSE (DEFINITION OF THE TIME INTERVAL UNIT: TOTAL) 9 MONTH SINCE LAST RITUIMAB DOS
  2. RITUXIMAB [Suspect]
     Active Substance: RITUXIMAB
     Dosage: RTX + PEX
  3. DARATUMUMAB [Suspect]
     Active Substance: DARATUMUMAB
     Indication: Focal segmental glomerulosclerosis
     Dosage: 16 MG/KG SINGLE
  4. BASILIXIMAB [Concomitant]
     Active Substance: BASILIXIMAB
  5. MYCOPHENOLATE MOFETIL [Concomitant]
     Active Substance: MYCOPHENOLATE MOFETIL
     Indication: Immunosuppressant drug therapy
     Dosage: 1 G, 2X/DAY
  6. TACROLIMUS [Concomitant]
     Active Substance: TACROLIMUS
     Indication: Immunosuppressant drug therapy

REACTIONS (6)
  - Drug resistance [Unknown]
  - Off label use [Unknown]
  - Drug ineffective for unapproved indication [Unknown]
  - Hypoalbuminaemia [Unknown]
  - Proteinuria [Unknown]
  - Drug effective for unapproved indication [Unknown]
